FAERS Safety Report 19075930 (Version 3)
Quarter: 2021Q3

REPORT INFORMATION
  Report Type: Spontaneous
  Country: US (occurrence: US)
  Receive Date: 20210330
  Receipt Date: 20210921
  Transmission Date: 20211014
  Serious: Yes (Hospitalization, Other)
  Sender: FDA-Public Use
  Company Number: US-GILEAD-2021-0523086

PATIENT
  Age: 42 Year
  Sex: Male
  Weight: 110.66 kg

DRUGS (19)
  1. SINGULAIR [Concomitant]
     Active Substance: MONTELUKAST SODIUM
  2. ZYRTEC [Concomitant]
     Active Substance: CETIRIZINE HYDROCHLORIDE
  3. DESCOVY [Concomitant]
     Active Substance: EMTRICITABINE\TENOFOVIR ALAFENAMIDE FUMARATE
  4. ZOFRAN [Concomitant]
     Active Substance: ONDANSETRON HYDROCHLORIDE
  5. VIREAD [Suspect]
     Active Substance: TENOFOVIR DISOPROXIL FUMARATE
     Indication: HIV INFECTION
     Dosage: UNK
     Route: 048
     Dates: start: 2011
  6. TRUVADA [Suspect]
     Active Substance: EMTRICITABINE\TENOFOVIR DISOPROXIL FUMARATE
     Indication: HIV INFECTION
     Dosage: UNK
     Route: 048
     Dates: start: 2011
  7. TRUVADA [Suspect]
     Active Substance: EMTRICITABINE\TENOFOVIR DISOPROXIL FUMARATE
     Dosage: UNK
     Route: 048
     Dates: start: 20051120, end: 20130808
  8. LYRICA [Concomitant]
     Active Substance: PREGABALIN
  9. OXYCODONE [Concomitant]
     Active Substance: OXYCODONE
  10. PROTONIX [OMEPRAZOLE] [Concomitant]
     Active Substance: OMEPRAZOLE
  11. RITONAVIR. [Concomitant]
     Active Substance: RITONAVIR
  12. ZANAFLEX [Concomitant]
     Active Substance: TIZANIDINE HYDROCHLORIDE
  13. VIREAD [Suspect]
     Active Substance: TENOFOVIR DISOPROXIL FUMARATE
     Dosage: UNK
     Route: 048
     Dates: start: 2002, end: 20051020
  14. NORVIR [Concomitant]
     Active Substance: RITONAVIR
  15. PREZISTA [Concomitant]
     Active Substance: DARUNAVIR ETHANOLATE
  16. FENTANYL. [Concomitant]
     Active Substance: FENTANYL
  17. INTELENCE [Concomitant]
     Active Substance: ETRAVIRINE
  18. CRESTOR [Concomitant]
     Active Substance: ROSUVASTATIN CALCIUM
  19. ALBUTEROL SULFATE. [Concomitant]
     Active Substance: ALBUTEROL SULFATE

REACTIONS (12)
  - Renal failure [Not Recovered/Not Resolved]
  - Renal pain [Unknown]
  - Nephrolithiasis [Unknown]
  - Anxiety [Not Recovered/Not Resolved]
  - Hypertension [Not Recovered/Not Resolved]
  - Mobility decreased [Not Recovered/Not Resolved]
  - Haematemesis [Unknown]
  - Anhedonia [Not Recovered/Not Resolved]
  - Emotional distress [Not Recovered/Not Resolved]
  - Asthenia [Not Recovered/Not Resolved]
  - Pain [Not Recovered/Not Resolved]
  - Drug ineffective [Unknown]

NARRATIVE: CASE EVENT DATE: 20151005
